FAERS Safety Report 19036463 (Version 1)
Quarter: 2021Q1

REPORT INFORMATION
  Report Type: Spontaneous
  Country: US (occurrence: US)
  Receive Date: 20210319
  Receipt Date: 20210319
  Transmission Date: 20210420
  Serious: Yes (Death)
  Sender: FDA-Public Use
  Company Number: None

PATIENT
  Age: 93 Year
  Sex: Female

DRUGS (9)
  1. ATORVASTATIN [Suspect]
     Active Substance: ATORVASTATIN
  2. IMATINIB 100MG [Suspect]
     Active Substance: IMATINIB
     Indication: CHRONIC MYELOID LEUKAEMIA
     Route: 048
     Dates: start: 20200624
  3. FUROSEMIDE. [Suspect]
     Active Substance: FUROSEMIDE
  4. PANTOPRAZOLE [Suspect]
     Active Substance: PANTOPRAZOLE
  5. TRIAZOLAM. [Suspect]
     Active Substance: TRIAZOLAM
  6. AMLODIPINE [Suspect]
     Active Substance: AMLODIPINE BESYLATE
  7. POT CHLORIDE [Suspect]
     Active Substance: POTASSIUM CHLORIDE
  8. VENLAFAXINE [Suspect]
     Active Substance: VENLAFAXINE HYDROCHLORIDE
  9. CARVEDILOL. [Suspect]
     Active Substance: CARVEDILOL

REACTIONS (1)
  - Death [None]
